FAERS Safety Report 19799580 (Version 2)
Quarter: 2021Q3

REPORT INFORMATION
  Report Type: Other
  Country: JP (occurrence: JP)
  Receive Date: 20210907
  Receipt Date: 20210913
  Transmission Date: 20211014
  Serious: Yes (Other)
  Sender: FDA-Public Use
  Company Number: JP-ROCHE-2905840

PATIENT
  Age: 16 Year
  Sex: Female

DRUGS (4)
  1. ACTEMRA [Suspect]
     Active Substance: TOCILIZUMAB
     Indication: WEBER-CHRISTIAN DISEASE
     Route: 065
  2. METHOTREXATE. [Concomitant]
     Active Substance: METHOTREXATE
     Indication: WEBER-CHRISTIAN DISEASE
     Dosage: UNK
     Route: 065
  3. PREDNISOLONE. [Concomitant]
     Active Substance: PREDNISOLONE
     Indication: WEBER-CHRISTIAN DISEASE
     Dosage: 1 MILLIGRAM/KILOGRAM, QD
     Route: 048
  4. AZATHIOPRINE. [Concomitant]
     Active Substance: AZATHIOPRINE
     Indication: WEBER-CHRISTIAN DISEASE
     Dosage: UNK
     Route: 065

REACTIONS (3)
  - Facial paralysis [Unknown]
  - Herpes virus infection [Unknown]
  - Off label use [Unknown]
